FAERS Safety Report 8542413-2 (Version None)
Quarter: 2012Q3

REPORT INFORMATION
  Report Type: 
  Country: None (occurrence: None)
  Receive Date: 20120726
  Receipt Date: 20120723
  Transmission Date: 20120928
  Serious: Yes (Other)
  Sender: FDA-Public Use
  Company Number: US-PFIZER INC-2012177681

PATIENT
  Sex: Female
  Weight: 58.05 kg

DRUGS (10)
  1. DICLOFENAC [Concomitant]
     Dosage: UNK
  2. DIOVAN [Concomitant]
     Dosage: UNK
  3. SUTENT [Suspect]
     Dosage: 50 MG, 1X/DAY
  4. COUMADIN [Concomitant]
     Dosage: UNK
  5. HYDROCODONE [Concomitant]
     Dosage: UNK
  6. FLEXERIL [Concomitant]
     Dosage: UNK
  7. IRON [Concomitant]
     Dosage: UNK
  8. FENTANYL [Concomitant]
     Dosage: UNK
  9. ZOFRAN [Concomitant]
     Dosage: UNK
  10. INDERAL [Concomitant]
     Dosage: UNK

REACTIONS (5)
  - DEMENTIA [None]
  - FATIGUE [None]
  - DEHYDRATION [None]
  - CONFUSIONAL STATE [None]
  - ACTIVITIES OF DAILY LIVING IMPAIRED [None]
